FAERS Safety Report 4970221-8 (Version None)
Quarter: 2006Q2

REPORT INFORMATION
  Report Type: 
  Country: None (occurrence: None)
  Receive Date: 20060406
  Receipt Date: 20060328
  Transmission Date: 20061013
  Serious: Yes (Other)
  Sender: FDA-Public Use
  Company Number: 2006043287

PATIENT
  Sex: Male

DRUGS (1)
  1. ZARONTIN [Suspect]
     Indication: EPILEPSY
     Dosage: 250 MG, ORAL
     Route: 048

REACTIONS (1)
  - CONVULSION [None]
